FAERS Safety Report 4523378-7 (Version None)
Quarter: 2004Q4

REPORT INFORMATION
  Report Type: 
  Country: None (occurrence: None)
  Receive Date: 20041210
  Receipt Date: 20041005
  Transmission Date: 20050328
  Serious: Yes (Hospitalization)
  Sender: FDA-Public Use
  Company Number: FR-MERCK-0410FRA00013

PATIENT
  Age: 79 Year
  Sex: Male

DRUGS (5)
  1. ZOCOR [Suspect]
     Route: 048
     Dates: start: 19990101, end: 20040905
  2. GLICLAZIDE [Suspect]
     Indication: DIABETES MELLITUS
     Route: 048
     Dates: start: 19990101, end: 20040905
  3. RAMIPRIL [Suspect]
     Route: 048
     Dates: start: 20030101, end: 20040905
  4. BISOPROLOL [Suspect]
     Route: 048
     Dates: start: 20030101, end: 20040905
  5. ASPIRIN LYSINE [Suspect]
     Route: 048
     Dates: start: 19990101, end: 20040905

REACTIONS (8)
  - CHOLELITHIASIS [None]
  - DIVERTICULUM DUODENAL [None]
  - DUODENAL ULCER [None]
  - HELICOBACTER INFECTION [None]
  - NECROSIS [None]
  - PANCREATITIS ACUTE [None]
  - PEPTIC ULCER PERFORATION [None]
  - SEPTIC SHOCK [None]
